FAERS Safety Report 17728089 (Version 1)
Quarter: 2020Q2

REPORT INFORMATION
  Report Type: Spontaneous
  Country: US (occurrence: US)
  Receive Date: 20200430
  Receipt Date: 20200430
  Transmission Date: 20200714
  Serious: Yes (Disabling)
  Sender: FDA-Public Use
  Company Number: None

PATIENT
  Age: 38 Year
  Sex: Female
  Weight: 76.5 kg

DRUGS (1)
  1. ALESSE 28 [Suspect]
     Active Substance: ETHINYL ESTRADIOL\LEVONORGESTREL
     Indication: CONTRACEPTION
     Dosage: ?          QUANTITY:1 TABLET(S);?
     Route: 048
     Dates: start: 20191201, end: 20200207

REACTIONS (12)
  - Chills [None]
  - Myalgia [None]
  - Hepatic enzyme increased [None]
  - Neck pain [None]
  - Muscular weakness [None]
  - Arthralgia [None]
  - Lymph node pain [None]
  - C-reactive protein increased [None]
  - Pyrexia [None]
  - Hepatomegaly [None]
  - Pain [None]
  - Fatigue [None]

NARRATIVE: CASE EVENT DATE: 20200214
